FAERS Safety Report 6841127-4 (Version None)
Quarter: 2010Q3

REPORT INFORMATION
  Report Type: 
  Country: None (occurrence: None)
  Receive Date: 20100714
  Receipt Date: 20070622
  Transmission Date: 20110219
  Serious: No
  Sender: FDA-Public Use
  Company Number: US-PFIZER INC-2007053635

PATIENT
  Sex: Male

DRUGS (6)
  1. CHANTIX [Suspect]
  2. CELEBREX [Concomitant]
  3. TAMSULOSIN HYDROCHLORIDE [Concomitant]
  4. VICODIN [Concomitant]
  5. OXYCONTIN [Concomitant]
  6. PROVIGIL [Concomitant]

REACTIONS (3)
  - ABNORMAL DREAMS [None]
  - INSOMNIA [None]
  - POLLAKIURIA [None]
